FAERS Safety Report 10373589 (Version 2)
Quarter: 2014Q3

REPORT INFORMATION
  Report Type: Spontaneous
  Country: JP (occurrence: JP)
  Receive Date: 20140808
  Receipt Date: 20140828
  Transmission Date: 20150326
  Serious: Yes (Hospitalization)
  Sender: FDA-Public Use
  Company Number: JP-JNJFOC-20140801786

PATIENT
  Sex: Female

DRUGS (1)
  1. LOPEMIN [Suspect]
     Active Substance: LOPERAMIDE HYDROCHLORIDE
     Indication: DIARRHOEA
     Route: 048

REACTIONS (3)
  - Diarrhoea [Unknown]
  - Nasopharyngitis [Unknown]
  - Constipation [Unknown]

NARRATIVE: CASE EVENT DATE: 201407
